FAERS Safety Report 5401956-0 (Version None)
Quarter: 2007Q3

REPORT INFORMATION
  Report Type: 
  Country: None (occurrence: None)
  Receive Date: 20070731
  Receipt Date: 20070720
  Transmission Date: 20080115
  Serious: Yes (Hospitalization)
  Sender: FDA-Public Use
  Company Number: IT-MERCK-0707ITA00037

PATIENT
  Age: 57 Year
  Sex: Female

DRUGS (7)
  1. CANCIDAS [Suspect]
     Indication: CANDIDIASIS
     Route: 041
  2. CANCIDAS [Suspect]
     Route: 041
  3. VANCOMYCIN [Concomitant]
     Route: 048
  4. MEROPENEM [Concomitant]
     Route: 065
  5. FLUCONAZOLE [Concomitant]
     Route: 065
  6. METRONIDAZOLE [Concomitant]
     Route: 048
  7. NONSTEROIDAL ANTI-INFLAMMATORY DRUG (UNSPECIFIED) [Concomitant]
     Route: 065

REACTIONS (1)
  - DRUG INEFFECTIVE [None]
